FAERS Safety Report 17104722 (Version 1)
Quarter: 2019Q4

REPORT INFORMATION
  Report Type: Spontaneous
  Country: US (occurrence: US)
  Receive Date: 20191202
  Receipt Date: 20191202
  Transmission Date: 20200122
  Serious: Yes (Death)
  Sender: FDA-Public Use
  Company Number: None

PATIENT
  Age: 4 Year
  Sex: Male
  Weight: 17 kg

DRUGS (1)
  1. LORTAB [Suspect]
     Active Substance: ACETAMINOPHEN\HYDROCODONE BITARTRATE
     Dosage: ?          OTHER DOSE:7ML(3.5MG HYDROCO);?
     Route: 048
     Dates: start: 20120301, end: 20120302

REACTIONS (5)
  - Incorrect dose administered [None]
  - Inappropriate schedule of product administration [None]
  - Product prescribing issue [None]
  - Regurgitation [None]
  - Cardio-respiratory arrest [None]

NARRATIVE: CASE EVENT DATE: 20120302
